FAERS Safety Report 5957570-1 (Version None)
Quarter: 2008Q4

REPORT INFORMATION
  Report Type: 
  Country: None (occurrence: None)
  Receive Date: 20081117
  Receipt Date: 20081117
  Transmission Date: 20090506
  Serious: Yes (Other)
  Sender: FDA-Public Use
  Company Number: None

PATIENT
  Sex: Female
  Weight: 49.8957 kg

DRUGS (2)
  1. CEPHALEXIN [Suspect]
     Indication: DENTAL CLEANING
     Dosage: 500 MG CAPS 2 CAPS EACH APPT. MOUTH
     Route: 048
     Dates: start: 20060401
  2. CEPHALEXIN [Suspect]
     Indication: DENTAL CLEANING
     Dosage: 500 MG CAPS 2 CAPS EACH APPT. MOUTH
     Route: 048
     Dates: start: 20070401

REACTIONS (4)
  - CHILLS [None]
  - DIARRHOEA [None]
  - PYREXIA [None]
  - VOMITING [None]
